FAERS Safety Report 7349146-9 (Version None)
Quarter: 2011Q1

REPORT INFORMATION
  Report Type: 
  Country: None (occurrence: None)
  Receive Date: 20110303
  Receipt Date: 20110216
  Transmission Date: 20110831
  Serious: Yes (Other)
  Sender: FDA-Public Use
  Company Number: 07-AUR-00202

PATIENT
  Age: 36 Year
  Sex: Female

DRUGS (1)
  1. METFORMIN HCL [Suspect]
     Indication: INFERTILITY
     Dosage: 1G-BID-

REACTIONS (1)
  - ALOPECIA [None]
